FAERS Safety Report 8992342 (Version 9)
Quarter: 2013Q3

REPORT INFORMATION
  Report Type: Spontaneous
  Country: US (occurrence: US)
  Receive Date: 20121231
  Receipt Date: 20130816
  Transmission Date: 20140515
  Serious: Yes (Hospitalization, Disabling, Other)
  Sender: FDA-Public Use
  Company Number: US-009507513-1212USA009958

PATIENT
  Sex: Female
  Weight: 82.86 kg

DRUGS (7)
  1. FOSAMAX [Suspect]
     Indication: OSTEOPOROSIS
     Dosage: 70 MG, QW
     Route: 048
     Dates: start: 1997, end: 2004
  2. FOSAMAX PLUS D [Suspect]
     Indication: OSTEOPOROSIS
     Dosage: 70MG/2800IU, QW
     Route: 048
     Dates: start: 2005, end: 2009
  3. ALENDRONATE SODIUM [Suspect]
     Dosage: 70 MG, UNK
     Route: 048
  4. ACTONEL [Suspect]
     Indication: PRODUCT USED FOR UNKNOWN INDICATION
     Dosage: UNK
     Dates: end: 20070724
  5. OMEGA-3 MARINE TRIGLYCERIDES [Concomitant]
     Dosage: DAILY
     Dates: start: 1993
  6. CALCIUM (UNSPECIFIED) [Concomitant]
     Dosage: DAILY
     Dates: start: 1993
  7. VITAMIN B COMPLEX [Concomitant]
     Dosage: DAILY
     Dates: start: 1993

REACTIONS (15)
  - Femur fracture [Not Recovered/Not Resolved]
  - Intramedullary rod insertion [Unknown]
  - Skin cancer [Unknown]
  - Low turnover osteopathy [Not Recovered/Not Resolved]
  - Osteoporosis [Not Recovered/Not Resolved]
  - Stress fracture [Not Recovered/Not Resolved]
  - Femur fracture [Not Recovered/Not Resolved]
  - Fall [Unknown]
  - Barrett^s oesophagus [Unknown]
  - Hypothyroidism [Unknown]
  - Arthritis [Unknown]
  - Post herpetic neuralgia [Unknown]
  - Skin operation [Unknown]
  - Drug hypersensitivity [Unknown]
  - Oedema peripheral [Unknown]
